FAERS Safety Report 13434231 (Version 1)
Quarter: 2017Q2

REPORT INFORMATION
  Report Type: Spontaneous
  Country: US (occurrence: US)
  Receive Date: 20170412
  Receipt Date: 20170412
  Transmission Date: 20170830
  Serious: Yes (Hospitalization)
  Sender: FDA-Public Use
  Company Number: None

PATIENT
  Age: 71 Year
  Sex: Male
  Weight: 68.4 kg

DRUGS (2)
  1. CETUXIMAB, 752 MG [Suspect]
     Active Substance: CETUXIMAB
     Indication: LARYNGEAL CANCER RECURRENT
     Route: 041
     Dates: start: 20170225, end: 20170225
  2. EPINEPHRINE. [Concomitant]
     Active Substance: EPINEPHRINE

REACTIONS (6)
  - Hypersensitivity [None]
  - Infusion related reaction [None]
  - Heart rate increased [None]
  - Loss of consciousness [None]
  - Cardio-respiratory arrest [None]
  - Hypotension [None]

NARRATIVE: CASE EVENT DATE: 20170225
